FAERS Safety Report 6218815-6 (Version None)
Quarter: 2009Q2

REPORT INFORMATION
  Report Type: 
  Country: None (occurrence: None)
  Receive Date: 20090608
  Receipt Date: 20090525
  Transmission Date: 20091009
  Serious: Yes (Hospitalization, Other)
  Sender: FDA-Public Use
  Company Number: SE-ELI_LILLY_AND_COMPANY-SE200905005895

PATIENT
  Age: 35 Year
  Sex: Male

DRUGS (4)
  1. ZYPREXA [Suspect]
     Indication: SCHIZOPHRENIA, PARANOID TYPE
     Dosage: 5 MG, DAILY (1/D)
     Route: 048
     Dates: start: 20011127, end: 20011203
  2. LEPONEX [Concomitant]
     Dosage: 0.5 MG, UNK
     Dates: end: 20011101
  3. LEPONEX [Concomitant]
     Dosage: 200 MG, DAILY (1/D)
     Dates: start: 20011203, end: 20011203
  4. ALPRAZOLAM [Concomitant]
     Dosage: 0.5 MG, UNK

REACTIONS (11)
  - ANXIETY [None]
  - BLUNTED AFFECT [None]
  - CARDIOMEGALY [None]
  - CONDITION AGGRAVATED [None]
  - DELUSION [None]
  - EXTRAPYRAMIDAL DISORDER [None]
  - HYPERHIDROSIS [None]
  - INTENTIONAL SELF-INJURY [None]
  - PNEUMONIA ASPIRATION [None]
  - SALIVARY HYPERSECRETION [None]
  - SLEEP DISORDER [None]
